FAERS Safety Report 14584008 (Version 1)
Quarter: 2018Q1

REPORT INFORMATION
  Report Type: Spontaneous
  Country: US (occurrence: US)
  Receive Date: 20180228
  Receipt Date: 20180228
  Transmission Date: 20180509
  Serious: Yes (Other)
  Sender: FDA-Public Use
  Company Number: US-OTSUKA-DJ201401639

PATIENT

DRUGS (1)
  1. ABILIFY [Suspect]
     Active Substance: ARIPIPRAZOLE
     Route: 065
     Dates: end: 2014

REACTIONS (5)
  - Hypersomnia [Unknown]
  - Ankle fracture [Unknown]
  - Depression [Recovered/Resolved]
  - Acoustic neuroma [Unknown]
  - Fall [Unknown]

NARRATIVE: CASE EVENT DATE: 2013
